FAERS Safety Report 21652936 (Version 1)
Quarter: 2022Q4

REPORT INFORMATION
  Report Type: Spontaneous
  Country: US (occurrence: None)
  Receive Date: 20221125
  Receipt Date: 20221125
  Transmission Date: 20230112
  Serious: Yes (Hospitalization)
  Sender: FDA-Public Use
  Company Number: None

PATIENT
  Age: 71 Year
  Sex: Female

DRUGS (1)
  1. LENALIDOMIDE [Suspect]
     Active Substance: LENALIDOMIDE
     Indication: Plasma cell myeloma
     Dosage: 15 MG DAILY BY MOUTH?
     Route: 048
     Dates: start: 202203, end: 202209

REACTIONS (2)
  - Chest pain [None]
  - Muscle spasms [None]

NARRATIVE: CASE EVENT DATE: 20221115
